FAERS Safety Report 22051598 (Version 2)
Quarter: 2023Q1

REPORT INFORMATION
  Report Type: Spontaneous
  Country: JP (occurrence: JP)
  Receive Date: 20230301
  Receipt Date: 20230318
  Transmission Date: 20230417
  Serious: Yes (Death, Other)
  Sender: FDA-Public Use
  Company Number: JP-ONO-2023JP004987

PATIENT
  Age: 78 Year
  Sex: Male

DRUGS (9)
  1. KYPROLIS [Suspect]
     Active Substance: CARFILZOMIB
     Indication: Plasma cell myeloma
     Dosage: 70 MILLIGRAM/SQ. METER, UNK
     Route: 041
     Dates: start: 20210216, end: 20210416
  2. KYPROLIS [Suspect]
     Active Substance: CARFILZOMIB
     Dosage: 70 UNK
     Route: 042
     Dates: start: 20210216, end: 20210416
  3. DEXAMETHASONE [Concomitant]
     Active Substance: DEXAMETHASONE
     Indication: Plasma cell myeloma
     Dosage: UNK
     Route: 065
     Dates: start: 20210216, end: 20210416
  4. DEXAMETHASONE [Concomitant]
     Active Substance: DEXAMETHASONE
     Dosage: UNK
     Dates: start: 20210423
  5. DEXAMETHASONE [Concomitant]
     Active Substance: DEXAMETHASONE
     Dosage: 4 MILLIGRAM, QWK
     Dates: start: 20210618
  6. IXAZOMIB CITRATE [Concomitant]
     Active Substance: IXAZOMIB CITRATE
     Indication: Plasma cell myeloma
     Dosage: UNK
     Route: 065
     Dates: start: 20210423
  7. IXAZOMIB CITRATE [Concomitant]
     Active Substance: IXAZOMIB CITRATE
     Dosage: 2.3 DOSAGE FORM, QD
     Dates: start: 20210618
  8. IXAZOMIB CITRATE [Concomitant]
     Active Substance: IXAZOMIB CITRATE
     Dosage: 3 DOSAGE FORM, QD
     Dates: start: 20210716
  9. LENALIDOMIDE [Concomitant]
     Active Substance: LENALIDOMIDE
     Indication: Plasma cell myeloma
     Dosage: UNK
     Route: 065
     Dates: start: 20210423

REACTIONS (7)
  - Vertebral column mass [Fatal]
  - Myeloma cast nephropathy [Fatal]
  - Hypercalcaemia [Fatal]
  - Oedema [Unknown]
  - Palpitations [Unknown]
  - Malaise [Unknown]
  - Drug intolerance [Unknown]
